FAERS Safety Report 9877159 (Version 2)
Quarter: 2014Q2

REPORT INFORMATION
  Report Type: Report from Study
  Country: FR (occurrence: FR)
  Receive Date: 20140206
  Receipt Date: 20140613
  Transmission Date: 20141212
  Serious: Yes (Hospitalization)
  Sender: FDA-Public Use
  Company Number: FR-ROCHE-1344954

PATIENT
  Age: 35 Year
  Sex: Male

DRUGS (7)
  1. BEVACIZUMAB [Suspect]
     Indication: COLORECTAL CANCER METASTATIC
     Dosage: LAST CYCLE ADMINISTERED BEFORE SAE WAS CYCLE 6 ON 19/MAR/2013 AT A DOSE OF 370 MG.?LAST CYCLE ADMINI
     Route: 042
  2. IRINOTECAN [Suspect]
     Indication: COLORECTAL CANCER METASTATIC
     Dosage: LAST DOSE ADMINISTERED WAS 340 MG.?LAST CYCLE ADMINISTERED BEFORE SAE WAS CYCLE 4 ON 07/JAN/2014 AT
     Route: 042
  3. ELVORINE [Suspect]
     Indication: COLORECTAL CANCER METASTATIC
     Dosage: LAST DOSE ADMINISTERED WAS 380 MG.?LAST CYCLE ADMINISTERED BEFORE SAE WAS CYCLE 4 ON 07/JAN/2014 AT
     Route: 065
  4. 5-FLUOROURACIL [Suspect]
     Indication: COLORECTAL CANCER METASTATIC
     Dosage: LAST DOSE ADMINISTERED WAS 380 MG IN BOLUS AND 4550 MG AS CONTINUOUS DOSING.?LAST CYCLE ADMINISTERED
     Route: 065
  5. CONTRAMAL [Concomitant]
     Indication: ABDOMINAL PAIN
     Route: 048
     Dates: start: 20130318
  6. INEXIUM [Concomitant]
     Indication: ABDOMINAL PAIN
     Route: 048
     Dates: start: 20130319
  7. NARAMIG [Concomitant]
     Route: 065

REACTIONS (3)
  - Cholecystitis [Recovered/Resolved]
  - Cholelithiasis [Recovered/Resolved]
  - Gastric ulcer [Recovered/Resolved]
